FAERS Safety Report 21671645 (Version 3)
Quarter: 2023Q1

REPORT INFORMATION
  Report Type: Spontaneous
  Country: US (occurrence: US)
  Receive Date: 20221202
  Receipt Date: 20230315
  Transmission Date: 20230417
  Serious: Yes (Hospitalization, Other)
  Sender: FDA-Public Use
  Company Number: US-BIOCODEX2-2022000871

PATIENT
  Age: 3 Year
  Sex: Female
  Weight: 11.8 kg

DRUGS (7)
  1. DIACOMIT [Suspect]
     Active Substance: STIRIPENTOL
     Indication: Severe myoclonic epilepsy of infancy
     Dosage: 500MG,300MG BY MOUTH TWICE A DAY
     Route: 048
     Dates: start: 20220629
  2. DIACOMIT [Suspect]
     Active Substance: STIRIPENTOL
     Indication: Severe myoclonic epilepsy of infancy
     Dosage: 300MG BY MOUTH TWICE DAILY
     Route: 048
     Dates: start: 202210, end: 2022
  3. CLOBAZAM [Concomitant]
     Active Substance: CLOBAZAM
     Indication: Severe myoclonic epilepsy of infancy
     Dosage: 2.5 MG/1.5 MG
     Route: 048
  4. DEPAKOTE [Concomitant]
     Active Substance: DIVALPROEX SODIUM
     Indication: Seizure
     Dosage: 125 MG TID
     Route: 048
  5. EPIDIOLEX [Concomitant]
     Active Substance: CANNABIDIOL
     Indication: Seizure
     Dosage: 100 MG BID
     Route: 048
  6. ZONISAMIDE [Concomitant]
     Active Substance: ZONISAMIDE
     Indication: Seizure
     Dosage: 50 MG BID
     Route: 048
  7. LEVOCARNITINE [Concomitant]
     Active Substance: LEVOCARNITINE
     Indication: Seizure
     Dosage: 200 MG TID
     Route: 048

REACTIONS (5)
  - Seizure [Unknown]
  - Product dose omission issue [Unknown]
  - Adverse event [Unknown]
  - Respiratory distress [Recovered/Resolved]
  - Endotracheal intubation [Recovered/Resolved]

NARRATIVE: CASE EVENT DATE: 20221119
